FAERS Safety Report 9282518 (Version 1)
Quarter: 2013Q2

REPORT INFORMATION
  Report Type: Spontaneous
  Country: US (occurrence: US)
  Receive Date: 20130510
  Receipt Date: 20130510
  Transmission Date: 20140414
  Serious: Yes (Hospitalization)
  Sender: FDA-Public Use
  Company Number: US-PFIZER INC-2013141508

PATIENT
  Age: 77 Year
  Sex: Female
  Weight: 49.89 kg

DRUGS (4)
  1. LIPITOR [Suspect]
     Indication: BLOOD CHOLESTEROL INCREASED
     Dosage: 20 MG, 1X/DAY
     Route: 048
  2. CENTRUM [Concomitant]
     Indication: VITAMIN SUPPLEMENTATION
     Dosage: UNK
  3. CALTRATE [Concomitant]
     Indication: SUPPLEMENTATION THERAPY
     Dosage: UNK
  4. TYLENOL [Concomitant]
     Indication: HEADACHE
     Dosage: UNK

REACTIONS (1)
  - Neoplasm malignant [Unknown]
